FAERS Safety Report 23663332 (Version 1)
Quarter: 2024Q1

REPORT INFORMATION
  Report Type: Spontaneous
  Country: US (occurrence: US)
  Receive Date: 20240322
  Receipt Date: 20240322
  Transmission Date: 20240410
  Serious: No
  Sender: FDA-Public Use
  Company Number: US-BRISTOL-MYERS SQUIBB COMPANY-2024-046253

PATIENT

DRUGS (2)
  1. SOTYKTU [Suspect]
     Active Substance: DEUCRAVACITINIB
     Indication: Lichen sclerosus
  2. SOTYKTU [Suspect]
     Active Substance: DEUCRAVACITINIB
     Indication: Eosinophilic fasciitis

REACTIONS (1)
  - Off label use [Unknown]
